FAERS Safety Report 25198044 (Version 1)
Quarter: 2025Q2

REPORT INFORMATION
  Report Type: Report from Study
  Country: TW (occurrence: TW)
  Receive Date: 20250415
  Receipt Date: 20250415
  Transmission Date: 20250716
  Serious: Yes (Life-Threatening)
  Sender: MYLAN
  Company Number: TW-MYLANLABS-2025M1032270

PATIENT
  Age: 55 Year
  Sex: Male

DRUGS (4)
  1. PHENYTOIN [Interacting]
     Active Substance: PHENYTOIN
     Indication: Seizure
  2. VALPROIC ACID [Interacting]
     Active Substance: VALPROIC ACID
     Indication: Seizure
     Dosage: 27.6 MILLIGRAM/KILOGRAM, QD
  3. LEVETIRACETAM [Concomitant]
     Active Substance: LEVETIRACETAM
     Indication: Seizure
  4. CLONAZEPAM [Concomitant]
     Active Substance: CLONAZEPAM
     Indication: Seizure

REACTIONS (4)
  - Hyperammonaemia [Unknown]
  - Hyperammonaemic encephalopathy [Unknown]
  - Coma [Unknown]
  - Labelled drug-drug interaction medication error [Unknown]
